FAERS Safety Report 4346895-1 (Version None)
Quarter: 2004Q1

REPORT INFORMATION
  Report Type: 
  Country: None (occurrence: None)
  Receive Date: 20040329
  Receipt Date: 20031222
  Transmission Date: 20041129
  Serious: No
  Sender: FDA-Public Use
  Company Number: USA031255249

PATIENT
  Age: 45 Year
  Sex: Female
  Weight: 64 kg

DRUGS (4)
  1. STRATTERA [Suspect]
     Indication: SOMNOLENCE
     Dosage: 40 MG/IN THE MORNING
     Dates: start: 20031219
  2. PROZAC [Concomitant]
  3. WELLBUTRIN [Concomitant]
  4. SYNTHROID [Concomitant]

REACTIONS (7)
  - ABNORMAL BEHAVIOUR [None]
  - APATHY [None]
  - CHILLS [None]
  - MYALGIA [None]
  - NERVOUSNESS [None]
  - TREMOR [None]
  - YAWNING [None]
